FAERS Safety Report 5972812-4 (Version None)
Quarter: 2008Q4

REPORT INFORMATION
  Report Type: 
  Country: None (occurrence: None)
  Receive Date: 20081201
  Receipt Date: 20080109
  Transmission Date: 20090506
  Serious: No
  Sender: FDA-Public Use
  Company Number: US-AMGEN-KDL260053

PATIENT
  Sex: Female

DRUGS (1)
  1. ENBREL [Suspect]
     Indication: RHEUMATOID ARTHRITIS
     Route: 058
     Dates: start: 19980101

REACTIONS (5)
  - LIPOSUCTION [None]
  - LYMPHADENOPATHY [None]
  - POST PROCEDURAL SWELLING [None]
  - SCAR EXCISION [None]
  - URINARY TRACT INFECTION [None]
